FAERS Safety Report 9916626 (Version 2)
Quarter: 2015Q1

REPORT INFORMATION
  Report Type: Spontaneous
  Country: US (occurrence: US)
  Receive Date: 20140221
  Receipt Date: 20150128
  Transmission Date: 20150721
  Serious: Yes (Other)
  Sender: FDA-Public Use
  Company Number: US-BAYER-2014-027032

PATIENT
  Age: 27 Year
  Sex: Female

DRUGS (1)
  1. MIRENA [Suspect]
     Active Substance: LEVONORGESTREL
     Dosage: 20 MCG/24HR, CONT
     Route: 015
     Dates: start: 20110701

REACTIONS (21)
  - Abdominal pain lower [None]
  - Visual impairment [None]
  - Pain [None]
  - Head discomfort [None]
  - Paraesthesia [None]
  - Fatigue [None]
  - Anxiety [None]
  - Intracranial pressure increased [None]
  - Benign intracranial hypertension [None]
  - Dysgeusia [None]
  - Migraine [None]
  - Headache [None]
  - Vision blurred [None]
  - Papilloedema [None]
  - Amnesia [None]
  - Dizziness [None]
  - Nausea [None]
  - Blindness transient [None]
  - Burning sensation [None]
  - Depression [None]
  - Injury [None]

NARRATIVE: CASE EVENT DATE: 201302
